APPROVED DRUG PRODUCT: ETHACRYNATE SODIUM
Active Ingredient: ETHACRYNATE SODIUM
Strength: EQ 50MG BASE/VIAL
Dosage Form/Route: INJECTABLE;INJECTION
Application: A208663 | Product #001 | TE Code: AP
Applicant: STERIMAX INC
Approved: Jun 9, 2020 | RLD: No | RS: No | Type: RX